FAERS Safety Report 6425511-9 (Version None)
Quarter: 2009Q4

REPORT INFORMATION
  Report Type: 
  Country: None (occurrence: None)
  Receive Date: 20091103
  Receipt Date: 20091023
  Transmission Date: 20100525
  Serious: Yes (Hospitalization, Other)
  Sender: FDA-Public Use
  Company Number: CA-JNJFOC-20091004513

PATIENT
  Sex: Female

DRUGS (4)
  1. REMICADE [Suspect]
     Dosage: WEEK 12 INFUSION
     Route: 042
     Dates: start: 20090320, end: 20090717
  2. REMICADE [Suspect]
     Dosage: WEEK 12 INFUSION
     Route: 042
     Dates: start: 20090320, end: 20090717
  3. REMICADE [Suspect]
     Dosage: WEEK 12 INFUSION
     Route: 042
     Dates: start: 20090320, end: 20090717
  4. REMICADE [Suspect]
     Indication: PSORIASIS
     Dosage: WEEK 12 INFUSION
     Route: 042
     Dates: start: 20090320, end: 20090717

REACTIONS (2)
  - PERICARDITIS [None]
  - TUBERCULOSIS [None]
